FAERS Safety Report 13358512 (Version 1)
Quarter: 2017Q1

REPORT INFORMATION
  Report Type: Report from Study
  Country: US (occurrence: US)
  Receive Date: 20170322
  Receipt Date: 20170322
  Transmission Date: 20170429
  Serious: Yes (Other)
  Sender: FDA-Public Use
  Company Number: US-CORCEPT THERAPEUTICS INC.-US-2017CRT000201

PATIENT

DRUGS (3)
  1. KORLYM [Suspect]
     Active Substance: MIFEPRISTONE
     Indication: PITUITARY-DEPENDENT CUSHING^S SYNDROME
     Dosage: 300 MG, QD
     Route: 048
     Dates: start: 20170209
  2. KORLYM [Suspect]
     Active Substance: MIFEPRISTONE
     Indication: HYPOTHYROIDISM
  3. KORLYM [Suspect]
     Active Substance: MIFEPRISTONE
     Indication: DIABETIC NEPHROPATHY

REACTIONS (1)
  - Foot operation [Recovering/Resolving]
